FAERS Safety Report 6664129-X (Version None)
Quarter: 2010Q2

REPORT INFORMATION
  Report Type: 
  Country: None (occurrence: None)
  Receive Date: 20100401
  Receipt Date: 20100324
  Transmission Date: 20101027
  Serious: Yes (Death)
  Sender: FDA-Public Use
  Company Number: B0642144A

PATIENT
  Age: 10 Year
  Sex: Female

DRUGS (2)
  1. SALBUTAMOL [Suspect]
     Indication: ASTHMA
     Dosage: 6U PER DAY
     Route: 055
  2. SERETIDE [Suspect]
     Indication: ASTHMA
     Dosage: 4U PER DAY
     Route: 055

REACTIONS (2)
  - ASTHMA [None]
  - OVERDOSE [None]
